FAERS Safety Report 23777137 (Version 1)
Quarter: 2024Q2

REPORT INFORMATION
  Report Type: Spontaneous
  Country: LU (occurrence: LU)
  Receive Date: 20240424
  Receipt Date: 20240424
  Transmission Date: 20240716
  Serious: Yes (Life-Threatening, Hospitalization, Other)
  Sender: FDA-Public Use
  Company Number: LU-CELLTRION INC.-2024LU009207

PATIENT

DRUGS (2)
  1. INFLIXIMAB [Suspect]
     Active Substance: INFLIXIMAB
     Indication: Crohn^s disease
     Dosage: FIRST ADMINISTRATION
     Route: 042
     Dates: start: 20210715, end: 20210715
  2. INFLIXIMAB [Suspect]
     Active Substance: INFLIXIMAB
     Dosage: 500 MG EVERY 1 TOTAL (SECOND ADMINISTRATION)
     Route: 042
     Dates: start: 20210804, end: 20210804

REACTIONS (8)
  - Cold sweat [Recovering/Resolving]
  - Feeling abnormal [Recovering/Resolving]
  - Hypotension [Recovering/Resolving]
  - Hypersensitivity [Recovering/Resolving]
  - Pyrexia [Recovering/Resolving]
  - Sepsis [Recovering/Resolving]
  - Incorrect product administration duration [Unknown]
  - Overdose [Unknown]

NARRATIVE: CASE EVENT DATE: 20210804
